FAERS Safety Report 24754340 (Version 1)
Quarter: 2024Q4

REPORT INFORMATION
  Report Type: Other
  Country: GB (occurrence: GB)
  Receive Date: 20241219
  Receipt Date: 20241219
  Transmission Date: 20250114
  Serious: Yes (Other)
  Sender: BIOCON
  Company Number: GB-CELLTRION INC.-2024GB028388

PATIENT

DRUGS (1)
  1. ADALIMUMAB [Suspect]
     Active Substance: ADALIMUMAB
     Indication: Product used for unknown indication
     Dosage: UNK, (SOLUTION FOR INJECTION)
     Route: 058

REACTIONS (2)
  - Surgery [Recovering/Resolving]
  - Lower respiratory tract infection [Recovering/Resolving]
